FAERS Safety Report 12201907 (Version 2)
Quarter: 2016Q1

REPORT INFORMATION
  Report Type: Report from Study
  Country: BR (occurrence: BR)
  Receive Date: 20160322
  Receipt Date: 20160328
  Transmission Date: 20160526
  Serious: Yes (Hospitalization, Other)
  Sender: FDA-Public Use
  Company Number: BR-BAYER-2016-051787

PATIENT
  Age: 70 Year
  Sex: Male

DRUGS (6)
  1. NEXAVAR [Suspect]
     Active Substance: SORAFENIB
     Indication: HEPATIC CANCER
     Dosage: 800 MG, QD
     Dates: start: 201508
  2. NEXAVAR [Suspect]
     Active Substance: SORAFENIB
     Indication: HEPATIC CANCER
     Dosage: 400 MG, QD
     Route: 048
     Dates: start: 201602
  3. MONOCORDIL [Concomitant]
     Active Substance: ISOSORBIDE MONONITRATE
     Indication: SUPPLEMENTATION THERAPY
     Dosage: 1 TABLET DAILY
  4. INSULIN [Concomitant]
     Active Substance: INSULIN NOS
     Indication: DIABETES MELLITUS
     Dosage: 4 U DURING LUNCH, 4 U DURING THE AFTERNOON
     Dates: start: 201507
  5. NPH INSULIN [Concomitant]
     Active Substance: INSULIN BEEF
     Indication: DIABETES MELLITUS
     Dosage: 13 U DURING THE MORNING, 4 U BEFORE BEDTIME
     Dates: start: 201507
  6. NEXAVAR [Suspect]
     Active Substance: SORAFENIB
     Indication: HEPATIC CANCER
     Dosage: 400 MG, QD
     Route: 048

REACTIONS (10)
  - Skin wound [Not Recovered/Not Resolved]
  - Nausea [Recovered/Resolved]
  - Diabetes mellitus [None]
  - Pruritus generalised [Not Recovered/Not Resolved]
  - Urinary tract infection [Recovered/Resolved]
  - Enterocolitis infectious [Recovered/Resolved]
  - Dry skin [Recovering/Resolving]
  - Encephalopathy [Recovered/Resolved]
  - Nervousness [None]
  - Diarrhoea [Recovered/Resolved]

NARRATIVE: CASE EVENT DATE: 201508
